FAERS Safety Report 9310404 (Version 1)
Quarter: 2013Q2

REPORT INFORMATION
  Report Type: Spontaneous
  Country: US (occurrence: US)
  Receive Date: 20130527
  Receipt Date: 20130527
  Transmission Date: 20140414
  Serious: No
  Sender: FDA-Public Use
  Company Number: US-PFIZER INC-2013161075

PATIENT
  Age: 59 Year
  Sex: Male
  Weight: 85.7 kg

DRUGS (5)
  1. CHANTIX [Suspect]
     Indication: SMOKING CESSATION THERAPY
     Dosage: UNK
     Dates: start: 2012
  2. ASPIRIN [Concomitant]
     Indication: HYPERTENSION
     Dosage: 325 MG, DAILY
     Dates: start: 2008
  3. ASPIRIN [Concomitant]
     Indication: ANTICOAGULANT THERAPY
  4. SIMVASTATIN [Concomitant]
     Indication: BLOOD CHOLESTEROL INCREASED
     Dosage: HALF TABLET, DAILY
     Dates: start: 2008
  5. TRAMADOL [Concomitant]
     Indication: PAIN IN EXTREMITY
     Dosage: UNK, AS NEEDED
     Dates: start: 2006

REACTIONS (3)
  - Abnormal dreams [Unknown]
  - Nightmare [Unknown]
  - Therapeutic response unexpected [Unknown]
